FAERS Safety Report 19862456 (Version 1)
Quarter: 2021Q3

REPORT INFORMATION
  Report Type: Spontaneous
  Country: US (occurrence: US)
  Receive Date: 20210921
  Receipt Date: 20210921
  Transmission Date: 20211014
  Serious: No
  Sender: FDA-Public Use
  Company Number: US-ELI_LILLY_AND_COMPANY-US202109005754

PATIENT
  Sex: Female

DRUGS (1)
  1. PROZAC [Suspect]
     Active Substance: FLUOXETINE HYDROCHLORIDE
     Indication: PREMENSTRUAL SYNDROME
     Dosage: UNK UNK, UNKNOWN
     Route: 048
     Dates: start: 1990

REACTIONS (6)
  - Depressed mood [Unknown]
  - Crying [Unknown]
  - Somnolence [Unknown]
  - Off label use [Unknown]
  - Hormone level abnormal [Unknown]
  - Agitation [Unknown]
